FAERS Safety Report 11040374 (Version 1)
Quarter: 2015Q2

REPORT INFORMATION
  Report Type: Spontaneous
  Country: DK (occurrence: GB)
  Receive Date: 20150416
  Receipt Date: 20150416
  Transmission Date: 20150821
  Serious: Yes (Other)
  Sender: FDA-Public Use
  Company Number: GB-FRI-1000075908

PATIENT
  Age: 34 Year
  Sex: Female
  Weight: 76.2 kg

DRUGS (1)
  1. CITALOPRAM [Suspect]
     Active Substance: CITALOPRAM HYDROBROMIDE
     Indication: POSTPARTUM DEPRESSION
     Dosage: 40 MG
     Route: 048

REACTIONS (2)
  - Contusion [Not Recovered/Not Resolved]
  - Joint swelling [Unknown]
